FAERS Safety Report 23757571 (Version 1)
Quarter: 2024Q2

REPORT INFORMATION
  Report Type: Spontaneous
  Country: US (occurrence: None)
  Receive Date: 20240418
  Receipt Date: 20240418
  Transmission Date: 20240716
  Serious: Yes (Hospitalization)
  Sender: FDA-Public Use
  Company Number: None

PATIENT
  Sex: Female

DRUGS (6)
  1. XOLAIR [Suspect]
     Active Substance: OMALIZUMAB
     Indication: Dermatitis atopic
     Dosage: FREQUENCY : MONTHLY;?
     Route: 058
     Dates: start: 20230427
  2. ESTRADIOL CRE 0.01% [Concomitant]
  3. KENALOG-40 INJ 40MG/ML [Concomitant]
  4. LEVOTHYROXIN TAB 150MCG [Concomitant]
  5. TRIAMCINOLONE ACETONIDE [Concomitant]
  6. ZYRTEC ALLGY TAB 10MG [Concomitant]

REACTIONS (2)
  - Hospitalisation [None]
  - Intentional dose omission [None]
